FAERS Safety Report 18251041 (Version 1)
Quarter: 2020Q3

REPORT INFORMATION
  Report Type: Other
  Country: CA (occurrence: CA)
  Receive Date: 20200910
  Receipt Date: 20200910
  Transmission Date: 20201103
  Serious: Yes (Death, Other)
  Sender: FDA-Public Use
  Company Number: CA-APOTEX-2020AP017363

PATIENT
  Age: 44 Year
  Sex: Female

DRUGS (2)
  1. APO? DASATINIB [Suspect]
     Active Substance: DASATINIB
     Indication: ANAEMIA
     Dosage: UNK
     Route: 065
  2. APO? DASATINIB [Suspect]
     Active Substance: DASATINIB
     Indication: BREAST CANCER

REACTIONS (1)
  - Death [Fatal]

NARRATIVE: CASE EVENT DATE: 20200824
